FAERS Safety Report 24036460 (Version 5)
Quarter: 2024Q4

REPORT INFORMATION
  Report Type: Spontaneous
  Country: DE (occurrence: DE)
  Receive Date: 20240701
  Receipt Date: 20241001
  Transmission Date: 20250115
  Serious: Yes (Life-Threatening)
  Sender: JOHNSON AND JOHNSON
  Company Number: DE-JNJFOC-20240660701

PATIENT
  Age: 16 Year
  Sex: Female

DRUGS (6)
  1. STELARA [Suspect]
     Active Substance: USTEKINUMAB
     Indication: Colitis ulcerative
     Route: 040
     Dates: start: 202305
  2. STELARA [Suspect]
     Active Substance: USTEKINUMAB
     Route: 058
  3. STELARA [Suspect]
     Active Substance: USTEKINUMAB
     Route: 058
  4. FRAGMIN [Concomitant]
     Active Substance: DALTEPARIN SODIUM
     Indication: Thrombosis prophylaxis
     Dates: start: 20240328
  5. HUMIRA [Concomitant]
     Active Substance: ADALIMUMAB
     Dates: start: 202305, end: 202306
  6. METRONIDAZOLE [Concomitant]
     Active Substance: METRONIDAZOLE
     Indication: Colitis ulcerative
     Route: 048
     Dates: start: 202305, end: 202306

REACTIONS (4)
  - Acute lymphocytic leukaemia [Not Recovered/Not Resolved]
  - Headache [Unknown]
  - Exposure during pregnancy [Recovered/Resolved]
  - Off label use [Unknown]

NARRATIVE: CASE EVENT DATE: 20230501
